FAERS Safety Report 9331103 (Version 1)
Quarter: 2013Q2

REPORT INFORMATION
  Report Type: Spontaneous
  Country: NL (occurrence: NL)
  Receive Date: 20130605
  Receipt Date: 20130605
  Transmission Date: 20140414
  Serious: Yes (Life-Threatening, Hospitalization)
  Sender: FDA-Public Use
  Company Number: NL-SANOFI-AVENTIS-2013SA053966

PATIENT
  Age: 20 Year
  Sex: Female
  Weight: 65 kg

DRUGS (3)
  1. DANAZOL [Suspect]
     Indication: HEREDITARY ANGIOEDEMA
     Dosage: STRENGTH:200MG
     Route: 048
     Dates: start: 201209
  2. IMPLANON [Interacting]
     Indication: CONTRACEPTION
     Dosage: STRENGTH: 68 MG
     Route: 058
     Dates: start: 201206
  3. ISONIAZID [Interacting]
     Indication: LATENT TUBERCULOSIS
     Dosage: 1 DD 1.5?STRENGTH: 200MG
     Route: 048
     Dates: start: 20130131

REACTIONS (2)
  - Angioedema [Recovered/Resolved]
  - Drug interaction [Unknown]
